FAERS Safety Report 6662200-X (Version None)
Quarter: 2010Q1

REPORT INFORMATION
  Report Type: 
  Country: None (occurrence: None)
  Receive Date: 20100331
  Receipt Date: 20100319
  Transmission Date: 20100710
  Serious: Yes (Hospitalization)
  Sender: FDA-Public Use
  Company Number: DE-MEDIMMUNE-MEDI-0010881

PATIENT
  Age: 1 Month

DRUGS (1)
  1. SYNAGIS [Suspect]
     Dates: start: 20091201

REACTIONS (1)
  - OBLITERATIVE BRONCHIOLITIS [None]
